FAERS Safety Report 23570095 (Version 1)
Quarter: 2024Q1

REPORT INFORMATION
  Report Type: Spontaneous
  Country: FR (occurrence: FR)
  Receive Date: 20240227
  Receipt Date: 20240227
  Transmission Date: 20240410
  Serious: Yes (Hospitalization)
  Sender: FDA-Public Use
  Company Number: FR-SUN PHARMACEUTICAL INDUSTRIES LTD-2024RR-432388

PATIENT
  Sex: Male
  Weight: 2.77 kg

DRUGS (1)
  1. PAROXETINE [Suspect]
     Active Substance: PAROXETINE
     Indication: Obsessive-compulsive disorder
     Dosage: 40 MILLIGRAM, DAILY
     Route: 064
     Dates: start: 20230112, end: 20231012

REACTIONS (1)
  - Neonatal behavioural syndrome [Recovered/Resolved]

NARRATIVE: CASE EVENT DATE: 20231012
